FAERS Safety Report 7546249-0 (Version None)
Quarter: 2011Q2

REPORT INFORMATION
  Report Type: 
  Country: None (occurrence: None)
  Receive Date: 20110614
  Receipt Date: 20040310
  Transmission Date: 20111010
  Serious: Yes (Other)
  Sender: FDA-Public Use
  Company Number: PHFR2003GB04715

PATIENT
  Sex: Male

DRUGS (1)
  1. CLOZARIL [Suspect]
     Indication: SCHIZOPHRENIA
     Dates: start: 20031126, end: 20031206

REACTIONS (16)
  - NAUSEA [None]
  - DIARRHOEA [None]
  - CHILLS [None]
  - OROPHARYNGEAL PAIN [None]
  - MUSCLE RIGIDITY [None]
  - RESPIRATORY TRACT INFECTION [None]
  - BLOOD ELECTROLYTES DECREASED [None]
  - PYREXIA [None]
  - VOMITING [None]
  - TREMOR [None]
  - BLOOD CREATINE PHOSPHOKINASE INCREASED [None]
  - TACHYCARDIA [None]
  - BLOOD POTASSIUM DECREASED [None]
  - BLOOD SODIUM DECREASED [None]
  - BLOOD UREA DECREASED [None]
  - COUGH [None]
